FAERS Safety Report 9094647 (Version 1)
Quarter: 2013Q1

REPORT INFORMATION
  Report Type: Spontaneous
  Country: US (occurrence: US)
  Receive Date: 20130204
  Receipt Date: 20130204
  Transmission Date: 20140127
  Serious: Yes (Other)
  Sender: FDA-Public Use
  Company Number: US-RB-049298-13

PATIENT
  Age: 49 Year
  Sex: Female

DRUGS (4)
  1. SUBOXONE FILM [Suspect]
     Indication: MIGRAINE
     Dosage: SUBOXONE FILM; 4MG - 8MG; AS NEEDED
     Route: 060
     Dates: start: 2011
  2. SUBOXONE FILM [Suspect]
     Indication: CONVULSION
     Dosage: SUBOXONE FILM; 2MG - 8MG; AS NEEDED
     Route: 060
     Dates: start: 2011
  3. UNSPECIFIED THYROID MEDICATION [Concomitant]
     Indication: THYROID DISORDER
     Dosage: DOSING DETAILS UNKNOWN
     Route: 065
  4. VALIUM [Concomitant]
     Indication: ANXIETY
     Dosage: DOSING DETAILS UNKNOWN
     Route: 065

REACTIONS (4)
  - Convulsion [Not Recovered/Not Resolved]
  - Off label use [Not Recovered/Not Resolved]
  - Wrong technique in drug usage process [Not Recovered/Not Resolved]
  - Intentional drug misuse [Not Recovered/Not Resolved]
